FAERS Safety Report 12836733 (Version 2)
Quarter: 2018Q1

REPORT INFORMATION
  Report Type: Spontaneous
  Country: US (occurrence: US)
  Receive Date: 20161011
  Receipt Date: 20180315
  Transmission Date: 20180508
  Serious: Yes (Hospitalization)
  Sender: FDA-Public Use
  Company Number: US-ENDO PHARMACEUTICALS INC.-2016-004626

PATIENT
  Age: 53 Year
  Sex: Male
  Weight: 104.31 kg

DRUGS (2)
  1. TESTIM [Suspect]
     Active Substance: TESTOSTERONE
     Indication: ANDROGEN REPLACEMENT THERAPY
     Dosage: 50 MG, DAILY
     Route: 062
     Dates: start: 20091214, end: 20100814
  2. CRESTOR [Concomitant]
     Active Substance: ROSUVASTATIN CALCIUM
     Indication: HYPERLIPIDAEMIA
     Dosage: UNK UNKNOWN, UNKNOWN
     Route: 065
     Dates: start: 200906

REACTIONS (7)
  - Pulmonary embolism [Unknown]
  - Liver abscess [Unknown]
  - Appendicitis [Unknown]
  - Pneumonia [Unknown]
  - Subdiaphragmatic abscess [Unknown]
  - Anaemia [Unknown]
  - Pelvic abscess [Unknown]

NARRATIVE: CASE EVENT DATE: 20101201
